FAERS Safety Report 5915416-1 (Version None)
Quarter: 2008Q4

REPORT INFORMATION
  Report Type: 
  Country: None (occurrence: None)
  Receive Date: 20081010
  Receipt Date: 20081001
  Transmission Date: 20090506
  Serious: Yes (Other)
  Sender: FDA-Public Use
  Company Number: US-PFIZER INC-2008084515

PATIENT
  Sex: Female

DRUGS (12)
  1. CHANTIX [Suspect]
     Indication: SMOKING CESSATION THERAPY
     Dates: start: 20080801
  2. LISINOPRIL [Concomitant]
     Indication: BLOOD PRESSURE
  3. LIPITOR [Concomitant]
     Indication: BLOOD CHOLESTEROL
  4. METOPROLOL TARTRATE [Concomitant]
     Indication: HEART RATE IRREGULAR
  5. VICODIN [Concomitant]
     Indication: PAIN
  6. AMITRIPTYLINE HCL [Concomitant]
     Indication: SLEEP DISORDER
  7. TRAZODONE HCL [Concomitant]
     Indication: SLEEP DISORDER
  8. ADVAIR DISKUS 100/50 [Concomitant]
     Indication: ASTHMA
  9. ADVAIR DISKUS 100/50 [Concomitant]
     Indication: HYPERSENSITIVITY
  10. ALBUTEROL [Concomitant]
     Indication: ASTHMA
  11. ALBUTEROL [Concomitant]
     Indication: HYPERSENSITIVITY
  12. ALL OTHER THERAPEUTIC PRODUCTS [Concomitant]
     Indication: PANIC ATTACK

REACTIONS (1)
  - COSTOCHONDRITIS [None]
